FAERS Safety Report 18135833 (Version 4)
Quarter: 2020Q3

REPORT INFORMATION
  Report Type: Spontaneous
  Country: ES (occurrence: ES)
  Receive Date: 20200811
  Receipt Date: 20200910
  Transmission Date: 20201103
  Serious: Yes (Other)
  Sender: FDA-Public Use
  Company Number: ES-MYLANLABS-2020M1069539

PATIENT
  Age: 61 Year
  Sex: Male

DRUGS (4)
  1. OLMESARTAN MEDOXOMIL. [Suspect]
     Active Substance: OLMESARTAN MEDOXOMIL
     Indication: HYPERTENSION
     Dosage: 10 MG, QD
     Route: 065
  2. OLMESARTAN MEDOXOMIL. [Suspect]
     Active Substance: OLMESARTAN MEDOXOMIL
     Dosage: 10 MG, QD
  3. OLMESARTAN MEDOXOMIL. [Suspect]
     Active Substance: OLMESARTAN MEDOXOMIL
     Dosage: UNK, DURING PRIOR 6 MONTHS
     Route: 065
  4. OLMESARTAN MEDOXOMIL. [Suspect]
     Active Substance: OLMESARTAN MEDOXOMIL
     Dosage: UNK
     Route: 048

REACTIONS (23)
  - Hepatic fibrosis [Recovered/Resolved]
  - Hepatitis [Recovered/Resolved]
  - Aspartate aminotransferase increased [Recovered/Resolved]
  - Serum ferritin increased [Recovered/Resolved]
  - Drug-induced liver injury [Recovered/Resolved]
  - Musculoskeletal pain [Recovered/Resolved]
  - Smooth muscle antibody positive [Recovered/Resolved]
  - Pyrexia [Recovered/Resolved]
  - Autoimmune hepatitis [Recovered/Resolved]
  - Hepatic enzyme increased [Recovered/Resolved]
  - Eosinophilia [Recovered/Resolved]
  - C-reactive protein increased [Recovered/Resolved]
  - Alanine aminotransferase increased [Recovered/Resolved]
  - Decreased appetite [Recovered/Resolved]
  - Blood alkaline phosphatase increased [Recovered/Resolved]
  - Condition aggravated [Recovered/Resolved]
  - Blood lactate dehydrogenase increased [Recovered/Resolved]
  - Gamma-glutamyltransferase increased [Recovered/Resolved]
  - Malaise [Recovered/Resolved]
  - Fatigue [Recovered/Resolved]
  - Weight decreased [Recovered/Resolved]
  - Blood bilirubin increased [Recovered/Resolved]
  - Blood immunoglobulin G increased [Recovered/Resolved]
